FAERS Safety Report 17410330 (Version 1)
Quarter: 2020Q1

REPORT INFORMATION
  Report Type: Spontaneous
  Country: GB (occurrence: GB)
  Receive Date: 20200212
  Receipt Date: 20200212
  Transmission Date: 20200409
  Serious: Yes (Other)
  Sender: FDA-Public Use
  Company Number: GB-JNJFOC-20200202547

PATIENT

DRUGS (1)
  1. STELARA [Suspect]
     Active Substance: USTEKINUMAB
     Indication: CROHN^S DISEASE
     Route: 058

REACTIONS (11)
  - Ascites [Unknown]
  - Cardiac failure congestive [Unknown]
  - Periorbital cellulitis [Unknown]
  - Fatigue [Unknown]
  - Hypersensitivity [Unknown]
  - Staphylococcal bacteraemia [Unknown]
  - Pneumonia [Unknown]
  - Migraine [Unknown]
  - Pancreatitis [Unknown]
  - Clostridium difficile infection [Unknown]
  - Arthralgia [Unknown]
